FAERS Safety Report 5919040-6 (Version None)
Quarter: 2008Q4

REPORT INFORMATION
  Report Type: 
  Country: None (occurrence: None)
  Receive Date: 20081014
  Receipt Date: 20081014
  Transmission Date: 20090506
  Serious: No
  Sender: FDA-Public Use
  Company Number: None

PATIENT
  Age: 55 Year
  Sex: Female
  Weight: 104.3273 kg

DRUGS (2)
  1. CYMBALTA [Suspect]
     Indication: DEPRESSION
     Dosage: 30MG QD PO
     Route: 048
     Dates: start: 20071101, end: 20081012
  2. CYMBALTA [Suspect]
     Indication: FIBROMYALGIA
     Dosage: 30MG QD PO
     Route: 048
     Dates: start: 20071101, end: 20081012

REACTIONS (7)
  - ABNORMAL DREAMS [None]
  - CRYING [None]
  - DRUG INEFFECTIVE [None]
  - HEADACHE [None]
  - INSOMNIA [None]
  - STRESS [None]
  - WITHDRAWAL SYNDROME [None]
